FAERS Safety Report 7412443-2 (Version None)
Quarter: 2011Q2

REPORT INFORMATION
  Report Type: 
  Country: None (occurrence: None)
  Receive Date: 20110413
  Receipt Date: 20110411
  Transmission Date: 20111010
  Serious: Yes (Life-Threatening, Hospitalization)
  Sender: FDA-Public Use
  Company Number: FR-SANOFI-AVENTIS-2011SA021980

PATIENT
  Age: 79 Year
  Sex: Female

DRUGS (8)
  1. HYPERIUM [Concomitant]
     Route: 048
  2. MONO TILDIEM LP [Concomitant]
     Route: 048
  3. SEROPRAM [Concomitant]
     Dosage: DOSE:1 UNIT(S)
  4. KALEORID [Concomitant]
     Route: 048
  5. AMARYL [Suspect]
     Route: 048
     Dates: end: 20110112
  6. PERINDOPRIL ERBUMINE [Interacting]
     Route: 048
  7. LASIX [Concomitant]
  8. MOPRAL [Concomitant]

REACTIONS (5)
  - FALL [None]
  - INJURY [None]
  - CONVULSION [None]
  - DRUG INTERACTION [None]
  - HYPOGLYCAEMIA [None]
